FAERS Safety Report 9834106 (Version 2)
Quarter: 2014Q1

REPORT INFORMATION
  Report Type: Spontaneous
  Country: US (occurrence: US)
  Receive Date: 20140122
  Receipt Date: 20140211
  Transmission Date: 20141002
  Serious: Yes (Other)
  Sender: FDA-Public Use
  Company Number: US-SHIRE-ALL1-2014-00328

PATIENT
  Sex: Male
  Weight: 45.35 kg

DRUGS (4)
  1. INTUNIV [Suspect]
     Indication: ATTENTION DEFICIT/HYPERACTIVITY DISORDER
     Dosage: UNK UNK, 1X/DAY:QD
     Route: 048
     Dates: start: 2013
  2. ADDERALL XR [Suspect]
     Indication: ATTENTION DEFICIT/HYPERACTIVITY DISORDER
     Dosage: 2 DF (2 CAPSULES), 1X/DAY:QD
     Route: 048
  3. ALBUTEROL                          /00139501/ [Concomitant]
     Indication: HYPERSENSITIVITY
     Dosage: UNK UNK, AS REQ^D
     Route: 055
  4. OTHER THERAPEUTIC PRODUCTS [Concomitant]
     Indication: PRODUCT USED FOR UNKNOWN INDICATION
     Dosage: UNK UNK, 1X/DAY:QD
     Route: 048

REACTIONS (12)
  - Weight increased [Not Recovered/Not Resolved]
  - Increased appetite [Unknown]
  - Dysphemia [Unknown]
  - Gynaecomastia [Not Recovered/Not Resolved]
  - Appetite disorder [Not Recovered/Not Resolved]
  - Blood cholesterol increased [Not Recovered/Not Resolved]
  - Psychomotor hyperactivity [Recovered/Resolved]
  - Disturbance in social behaviour [Recovered/Resolved]
  - Salt craving [Not Recovered/Not Resolved]
  - Logorrhoea [Recovered/Resolved]
  - Decreased appetite [Not Recovered/Not Resolved]
  - Drug dose omission [Recovered/Resolved]
